FAERS Safety Report 25476525 (Version 1)
Quarter: 2025Q2

REPORT INFORMATION
  Report Type: Spontaneous
  Country: US (occurrence: US)
  Receive Date: 20250625
  Receipt Date: 20250625
  Transmission Date: 20250717
  Serious: Yes (Other)
  Sender: DR REDDYS
  Company Number: US-DRL-USA-USA/2025/06/009074

PATIENT
  Age: 14 Year
  Sex: Male

DRUGS (7)
  1. IMATINIB [Suspect]
     Active Substance: IMATINIB
     Indication: B-cell type acute leukaemia
  2. VINCRISTINE [Concomitant]
     Active Substance: VINCRISTINE
     Indication: B-cell type acute leukaemia
  3. DAUNORUBICIN [Concomitant]
     Active Substance: DAUNORUBICIN
     Indication: B-cell type acute leukaemia
  4. PEGASPARGASE [Concomitant]
     Active Substance: PEGASPARGASE
     Indication: B-cell type acute leukaemia
  5. DEXAMETHASONE [Concomitant]
     Active Substance: DEXAMETHASONE
     Indication: B-cell type acute leukaemia
  6. CYTARABINE [Concomitant]
     Active Substance: CYTARABINE
     Indication: B-cell type acute leukaemia
     Route: 037
  7. METHOTREXATE [Concomitant]
     Active Substance: METHOTREXATE
     Indication: B-cell type acute leukaemia
     Route: 037

REACTIONS (1)
  - Drug ineffective [Unknown]
